FAERS Safety Report 7028261-3 (Version None)
Quarter: 2010Q4

REPORT INFORMATION
  Report Type: 
  Country: None (occurrence: None)
  Receive Date: 20101005
  Receipt Date: 20100924
  Transmission Date: 20110411
  Serious: Yes (Other)
  Sender: FDA-Public Use
  Company Number: US-PFIZER INC-2010095111

PATIENT
  Sex: Male
  Weight: 104 kg

DRUGS (2)
  1. VFEND [Suspect]
     Indication: HISTOPLASMOSIS
     Dosage: 200 MG, 2X/DAY
     Route: 048
     Dates: start: 20100115, end: 20100701
  2. MIRTAZAPINE [Concomitant]
     Indication: BIPOLAR DISORDER

REACTIONS (4)
  - APHASIA [None]
  - MEMORY IMPAIRMENT [None]
  - SPEECH DISORDER [None]
  - THINKING ABNORMAL [None]
